FAERS Safety Report 5850212-5 (Version None)
Quarter: 2008Q3

REPORT INFORMATION
  Report Type: 
  Country: None (occurrence: None)
  Receive Date: 20080731
  Receipt Date: 20080410
  Transmission Date: 20090109
  Serious: No
  Sender: FDA-Public Use
  Company Number: US200804003130

PATIENT
  Age: 36 Year
  Sex: Male

DRUGS (4)
  1. BYETTA [Suspect]
     Indication: TYPE 2 DIABETES MELLITUS
     Dosage: 5 UG, 2/D, SUBCUTANEOUS
     Route: 058
     Dates: start: 20080410
  2. GLIPIZIDE [Concomitant]
  3. ALLEGRA [Concomitant]
  4. PRILOSEC [Concomitant]

REACTIONS (6)
  - DIZZINESS [None]
  - DYSGEUSIA [None]
  - FEELING ABNORMAL [None]
  - FEELING JITTERY [None]
  - PRURITUS [None]
  - THROAT IRRITATION [None]
